FAERS Safety Report 9129448 (Version 1)
Quarter: 2013Q1

REPORT INFORMATION
  Report Type: Spontaneous
  Country: DE (occurrence: DE)
  Receive Date: 20130228
  Receipt Date: 20130228
  Transmission Date: 20140127
  Serious: Yes (Hospitalization)
  Sender: FDA-Public Use
  Company Number: DE-UCBSA-078864

PATIENT
  Sex: 0

DRUGS (2)
  1. LACOSAMIDE [Suspect]
  2. LEVETIRACETAM [Suspect]

REACTIONS (1)
  - Atrioventricular block second degree [Unknown]
